FAERS Safety Report 25096357 (Version 2)
Quarter: 2025Q2

REPORT INFORMATION
  Report Type: Spontaneous
  Country: CA (occurrence: CA)
  Receive Date: 20250319
  Receipt Date: 20250515
  Transmission Date: 20250716
  Serious: Yes (Other)
  Sender: PFIZER
  Company Number: CA-PFIZER INC-202500059567

PATIENT
  Age: 60 Year
  Sex: Male

DRUGS (2)
  1. RUXIENCE [Suspect]
     Active Substance: RITUXIMAB-PVVR
     Indication: Rheumatoid arthritis
     Route: 042
     Dates: start: 20241002, end: 20241016
  2. METHOTREXATE SODIUM [Suspect]
     Active Substance: METHOTREXATE SODIUM
     Dosage: 15 MG WEEKLY (2.5MG TABLET)
     Route: 048

REACTIONS (7)
  - Eyelid ptosis [Unknown]
  - Upper respiratory tract infection [Unknown]
  - Heart rate increased [Unknown]
  - Parotid gland enlargement [Unknown]
  - Alanine aminotransferase increased [Unknown]
  - Complement factor C4 increased [Unknown]
  - Rheumatoid factor increased [Unknown]

NARRATIVE: CASE EVENT DATE: 20240101
